FAERS Safety Report 8163996-0 (Version None)
Quarter: 2012Q1

REPORT INFORMATION
  Report Type: 
  Country: None (occurrence: None)
  Receive Date: 20120224
  Receipt Date: 20120216
  Transmission Date: 20120608
  Serious: Yes (Hospitalization, Other)
  Sender: FDA-Public Use
  Company Number: PHHY2012NO007956

PATIENT
  Sex: Female

DRUGS (2)
  1. EXJADE [Suspect]
     Dosage: 1250 MG, QD
     Route: 048
     Dates: start: 20101201, end: 20110714
  2. EXJADE [Suspect]
     Indication: HAEMOCHROMATOSIS
     Dosage: 1250 MG, QD
     Route: 048
     Dates: start: 20091116

REACTIONS (5)
  - CHORIORETINOPATHY [None]
  - MACULOPATHY [None]
  - MUSCLE SPASMS [None]
  - PRE-ECLAMPSIA [None]
  - MATERNAL EXPOSURE DURING PREGNANCY [None]
